FAERS Safety Report 7193574-1 (Version None)
Quarter: 2010Q4

REPORT INFORMATION
  Report Type: 
  Country: None (occurrence: None)
  Receive Date: 20101223
  Receipt Date: 20101220
  Transmission Date: 20110411
  Serious: Yes (Hospitalization)
  Sender: FDA-Public Use
  Company Number: ES-PFIZER INC-2010175348

PATIENT
  Age: 9 Year
  Sex: Male
  Weight: 31.9 kg

DRUGS (4)
  1. SOMATROPIN RDNA [Suspect]
     Dosage: 4.8 MG, 1X/DAY
     Dates: start: 20050502, end: 20100920
  2. VALPROIC ACID [Concomitant]
     Indication: EPILEPSY
     Dosage: UNK
     Route: 048
     Dates: start: 20061023
  3. OXCARBAZEPINE [Concomitant]
     Indication: EPILEPSY
     Dosage: UNK
     Route: 048
     Dates: start: 20061023
  4. DESMOPRESSIN [Concomitant]
     Indication: EPILEPSY
     Dosage: UNK
     Dates: start: 20090201

REACTIONS (3)
  - ENURESIS [None]
  - OSTEONECROSIS [None]
  - PARTIAL SEIZURES [None]
